FAERS Safety Report 25084332 (Version 3)
Quarter: 2025Q1

REPORT INFORMATION
  Report Type: Spontaneous
  Country: CA (occurrence: CA)
  Receive Date: 20250317
  Receipt Date: 20250331
  Transmission Date: 20250409
  Serious: Yes (Other)
  Sender: WAYLIS THERAPEUTICS
  Company Number: CA-WOODWARD-2024-CA-001744

PATIENT
  Age: 41 Year
  Sex: Female

DRUGS (63)
  1. RABEPRAZOLE SODIUM [Suspect]
     Active Substance: RABEPRAZOLE SODIUM
     Indication: Migraine
     Route: 048
     Dates: start: 20200213
  2. AMOXICILLIN [Suspect]
     Active Substance: AMOXICILLIN
  3. AZITHROMYCIN [Suspect]
     Active Substance: AZITHROMYCIN
     Dates: start: 20120523, end: 20120523
  4. BOTULINUM TOXIN TYPE A [Suspect]
     Active Substance: BOTULINUM TOXIN TYPE A
     Dates: start: 20190816, end: 20190816
  5. CLARITHROMYCIN [Suspect]
     Active Substance: CLARITHROMYCIN
     Dates: start: 20130130, end: 20230130
  6. CODEINE [Suspect]
     Active Substance: CODEINE
     Route: 048
     Dates: start: 20130130, end: 20130130
  7. INDOMETHACIN [Suspect]
     Active Substance: INDOMETHACIN
     Route: 054
     Dates: start: 20200213
  8. LANSOPRAZOLE [Suspect]
     Active Substance: LANSOPRAZOLE
     Route: 048
  9. METOCLOPRAMIDE HYDROCHLORIDE [Suspect]
     Active Substance: METOCLOPRAMIDE HYDROCHLORIDE
  10. MOMETASONE FUROATE [Suspect]
     Active Substance: MOMETASONE FUROATE
     Dates: start: 20190725
  11. RIZATRIPTAN BENZOATE [Suspect]
     Active Substance: RIZATRIPTAN BENZOATE
  12. ESOMEPRAZOLE MAGNESIUM [Suspect]
     Active Substance: ESOMEPRAZOLE MAGNESIUM
     Route: 048
  13. ACETAMINOPHEN\BUTYLSCOPOLAMINE BROMIDE [Suspect]
     Active Substance: ACETAMINOPHEN\BUTYLSCOPOLAMINE BROMIDE
  14. ALBUTEROL [Suspect]
     Active Substance: ALBUTEROL
  15. SERTRALINE HYDROCHLORIDE [Suspect]
     Active Substance: SERTRALINE HYDROCHLORIDE
  16. SUMATRIPTAN [Suspect]
     Active Substance: SUMATRIPTAN
  17. SUMATRIPTAN SUCCINATE [Suspect]
     Active Substance: SUMATRIPTAN SUCCINATE
  18. DULOXETINE [Suspect]
     Active Substance: DULOXETINE
  19. TOPIRAMATE [Suspect]
     Active Substance: TOPIRAMATE
  20. VENLAFAXINE HYDROCHLORIDE [Suspect]
     Active Substance: VENLAFAXINE HYDROCHLORIDE
  21. ZOPICLONE [Suspect]
     Active Substance: ZOPICLONE
     Dates: start: 20120512, end: 20120707
  22. ZOLMITRIPTAN [Suspect]
     Active Substance: ZOLMITRIPTAN
     Route: 048
  23. AMOXICILLIN TRIHYDRATE [Suspect]
     Active Substance: AMOXICILLIN
  24. PREDNISONE [Suspect]
     Active Substance: PREDNISONE
     Route: 048
  25. DEXAMETHASONE [Suspect]
     Active Substance: DEXAMETHASONE
     Route: 048
     Dates: start: 20180618, end: 20180618
  26. DULOXETINE [Suspect]
     Active Substance: DULOXETINE
     Route: 048
  27. TRIMETHOPRIM [Suspect]
     Active Substance: TRIMETHOPRIM
     Route: 048
  28. FLUCONAZOLE [Suspect]
     Active Substance: FLUCONAZOLE
     Dates: start: 20180424, end: 20180424
  29. HYDROMORPHONE HYDROCHLORIDE [Suspect]
     Active Substance: HYDROMORPHONE HYDROCHLORIDE
     Dates: start: 20200213
  30. INDOMETHACIN [Suspect]
     Active Substance: INDOMETHACIN
     Route: 054
  31. TRAMADOL HYDROCHLORIDE [Suspect]
     Active Substance: TRAMADOL HYDROCHLORIDE
  32. ESCITALOPRAM [Suspect]
     Active Substance: ESCITALOPRAM OXALATE
     Route: 048
  33. METOCLOPRAMIDE [Suspect]
     Active Substance: METOCLOPRAMIDE
  34. CLOTRIMAZOLE [Suspect]
     Active Substance: CLOTRIMAZOLE
  35. ACETAMINOPHEN\DIPHENHYDRAMINE HYDROCHLORIDE [Suspect]
     Active Substance: ACETAMINOPHEN\DIPHENHYDRAMINE HYDROCHLORIDE
  36. CYMBALTA [Concomitant]
     Active Substance: DULOXETINE HYDROCHLORIDE
  37. LISINOPRIL [Concomitant]
     Active Substance: LISINOPRIL
     Route: 048
  38. CEFUROXIME AXETIL [Concomitant]
     Active Substance: CEFUROXIME AXETIL
  39. ACETAMINOPHEN\CODEINE PHOSPHATE [Concomitant]
     Active Substance: ACETAMINOPHEN\CODEINE PHOSPHATE
  40. CEPHALEXIN [Concomitant]
     Active Substance: CEPHALEXIN
  41. DANAZOL [Concomitant]
     Active Substance: DANAZOL
     Route: 048
  42. CIPROFLOXACIN [Suspect]
     Active Substance: CIPROFLOXACIN
     Route: 048
     Dates: start: 20170930, end: 20170930
  43. FERROUS FUMARATE [Concomitant]
     Active Substance: FERROUS FUMARATE
  44. FLUOXETINE [Concomitant]
     Active Substance: FLUOXETINE HYDROCHLORIDE
  45. FLUTICASONE [Concomitant]
     Active Substance: FLUTICASONE
  46. FROVA [Concomitant]
     Active Substance: FROVATRIPTAN SUCCINATE
  47. MACROBID [Concomitant]
     Active Substance: NITROFURANTOIN\NITROFURANTOIN MONOHYDRATE
  48. POLYETHYLENE GLYCOLS [Concomitant]
     Active Substance: POLYETHYLENE GLYCOLS
  49. METOCLOPRAMIDE [Concomitant]
     Active Substance: METOCLOPRAMIDE
  50. METRONIDAZOLE [Concomitant]
     Active Substance: METRONIDAZOLE
  51. MORPHINE SULFATE [Concomitant]
     Active Substance: MORPHINE SULFATE
  52. NAPROXEN [Concomitant]
     Active Substance: NAPROXEN
  53. LISINOPRIL [Suspect]
     Active Substance: LISINOPRIL
     Route: 048
  54. NASONEX [Concomitant]
     Active Substance: MOMETASONE FUROATE
  55. OSELTAMIVIR [Concomitant]
     Active Substance: OSELTAMIVIR
  56. PANTOPRAZOLE SODIUM [Concomitant]
     Active Substance: PANTOPRAZOLE SODIUM
  57. SULFATRIM [Concomitant]
     Active Substance: SULFAMETHOXAZOLE\TRIMETHOPRIM
  58. ALLOPURINOL [Concomitant]
     Active Substance: ALLOPURINOL
     Route: 048
  59. CEFUROXIME SODIUM [Concomitant]
     Active Substance: CEFUROXIME SODIUM
  60. ELAVIL [Concomitant]
     Active Substance: AMITRIPTYLINE HYDROCHLORIDE
  61. PROPRANOLOL [Suspect]
     Active Substance: PROPRANOLOL HYDROCHLORIDE
  62. TRAMADOL HYDROCHLORIDE [Suspect]
     Active Substance: TRAMADOL HYDROCHLORIDE
     Route: 048
  63. ACETAMINOPHEN [Suspect]
     Active Substance: ACETAMINOPHEN
     Route: 048

REACTIONS (8)
  - Dysphonia [Unknown]
  - Swollen tongue [Unknown]
  - Hypersensitivity [Unknown]
  - Swelling face [Unknown]
  - Headache [Unknown]
  - Angioedema [Unknown]
  - Drug ineffective [Unknown]
  - Off label use [Unknown]
